FAERS Safety Report 19836119 (Version 1)
Quarter: 2021Q3

REPORT INFORMATION
  Report Type: Spontaneous
  Country: AT (occurrence: AT)
  Receive Date: 20210915
  Receipt Date: 20210915
  Transmission Date: 20211014
  Serious: Yes (Other)
  Sender: FDA-Public Use
  Company Number: AT-MYLANLABS-2021M1061719

PATIENT
  Sex: Female

DRUGS (6)
  1. CARBOPLATIN. [Suspect]
     Active Substance: CARBOPLATIN
     Indication: CLEAR CELL SARCOMA OF THE KIDNEY
     Dosage: UNK, CYCLE
  2. IFOSFAMIDE. [Suspect]
     Active Substance: IFOSFAMIDE
     Indication: CLEAR CELL SARCOMA OF THE KIDNEY
     Dosage: UNK
  3. DOXORUBICIN [Suspect]
     Active Substance: DOXORUBICIN
     Indication: CLEAR CELL SARCOMA OF THE KIDNEY
     Dosage: UNK, CYCLE
  4. ETOPOSIDE. [Suspect]
     Active Substance: ETOPOSIDE
     Indication: CLEAR CELL SARCOMA OF THE KIDNEY
     Dosage: UNK, CYCLE
  5. ACTINOMYCIN D [Suspect]
     Active Substance: DACTINOMYCIN
     Indication: CLEAR CELL SARCOMA OF THE KIDNEY
     Dosage: UNK, CYCLE
  6. VINCRISTINE SULFATE. [Suspect]
     Active Substance: VINCRISTINE SULFATE
     Indication: CLEAR CELL SARCOMA OF THE KIDNEY
     Dosage: UNK, CYCLE

REACTIONS (1)
  - Renal tubular dysfunction [Unknown]
